FAERS Safety Report 4270750-9 (Version None)
Quarter: 2004Q1

REPORT INFORMATION
  Report Type: 
  Country: None (occurrence: None)
  Receive Date: 20040114
  Receipt Date: 20020415
  Transmission Date: 20041129
  Serious: Yes (Congenital Anomaly)
  Sender: FDA-Public Use
  Company Number: 311413

PATIENT
  Sex: Female
  Weight: 3.9 kg

DRUGS (2)
  1. ACCUTANE [Suspect]
     Dates: start: 20020115, end: 20020213
  2. ACCUTANE [Suspect]
     Dates: start: 20020214, end: 20020315

REACTIONS (11)
  - ANOMALY OF EXTERNAL EAR CONGENITAL [None]
  - ANOTIA [None]
  - CONGENITAL ATRIAL SEPTAL DEFECT [None]
  - CONGENITAL NOSE MALFORMATION [None]
  - DEAFNESS CONGENITAL [None]
  - FACIAL PALSY [None]
  - MATERNAL DRUGS AFFECTING FOETUS [None]
  - MICROGNATHIA [None]
  - MICROTIA [None]
  - PATENT DUCTUS ARTERIOSUS [None]
  - PREGNANCY [None]
